FAERS Safety Report 5483565-0 (Version None)
Quarter: 2007Q4

REPORT INFORMATION
  Report Type: 
  Country: None (occurrence: None)
  Receive Date: 20071012
  Receipt Date: 20071001
  Transmission Date: 20080405
  Serious: Yes (Other)
  Sender: FDA-Public Use
  Company Number: CA-JNJFOC-20070601048

PATIENT
  Age: 12 Year
  Sex: Female

DRUGS (8)
  1. REMICADE [Suspect]
     Indication: SARCOIDOSIS
     Route: 042
  2. REMICADE [Suspect]
     Indication: UVEITIS
     Route: 042
  3. PREDNISONE [Concomitant]
  4. METHOTREXATE [Concomitant]
     Route: 058
  5. PLAQUENIL [Concomitant]
     Route: 058
  6. FOLIC ACID [Concomitant]
     Route: 058
  7. VITAMIN D [Concomitant]
     Route: 058
  8. MULTI-VITAMIN [Concomitant]
     Route: 058

REACTIONS (1)
  - DEMYELINATION [None]
